FAERS Safety Report 24029855 (Version 2)
Quarter: 2024Q3

REPORT INFORMATION
  Report Type: Spontaneous
  Country: IL (occurrence: IL)
  Receive Date: 20240628
  Receipt Date: 20240715
  Transmission Date: 20241017
  Serious: Yes (Other)
  Sender: ALNYLAM PHARMACEUTICALS
  Company Number: IL-ALNYLAM NETHERLANDS BV-ALN-2023-001619

PATIENT

DRUGS (3)
  1. OXLUMO [Suspect]
     Active Substance: LUMASIRAN
     Indication: Primary hyperoxaluria
     Dosage: 30 MILLIGRAM, MONTHLY
     Route: 058
     Dates: start: 20220530, end: 20220530
  2. OXLUMO [Suspect]
     Active Substance: LUMASIRAN
     Dosage: 4 MILLIGRAM/KILOGRAM, MONTHLY (30 MG)
     Route: 058
     Dates: start: 20230402, end: 202306
  3. OXLUMO [Suspect]
     Active Substance: LUMASIRAN
     Dosage: 6 MILLIGRAM/KILOGRAM, MONTHLY
     Route: 058

REACTIONS (6)
  - Renal and liver transplant [Recovered/Resolved]
  - Retinal deposits [Not Recovered/Not Resolved]
  - Disease progression [Unknown]
  - Hyperoxalaemia [Unknown]
  - Intentional product use issue [Unknown]
  - Drug effect less than expected [Unknown]

NARRATIVE: CASE EVENT DATE: 20230329
